FAERS Safety Report 20760466 (Version 1)
Quarter: 2022Q2

REPORT INFORMATION
  Report Type: Spontaneous
  Country: US (occurrence: US)
  Receive Date: 20220428
  Receipt Date: 20220428
  Transmission Date: 20220721
  Serious: No
  Sender: FDA-Public Use
  Company Number: US-ENDO PHARMACEUTICALS INC-2021-010655

PATIENT
  Sex: Female

DRUGS (1)
  1. QWO [Suspect]
     Active Substance: COLLAGENASE CLOSTRIDIUM HISTOLYTICUM-AAES
     Indication: Product used for unknown indication
     Dosage: UNK UNKNOWN, TREATMENT ONE
     Route: 065
     Dates: start: 20210505

REACTIONS (5)
  - Skin indentation [Recovering/Resolving]
  - Lipodystrophy acquired [Recovering/Resolving]
  - Skin laxity [Unknown]
  - Skin discolouration [Not Recovered/Not Resolved]
  - Skin hyperpigmentation [Not Recovered/Not Resolved]

NARRATIVE: CASE EVENT DATE: 20210101
